FAERS Safety Report 5486765-9 (Version None)
Quarter: 2007Q4

REPORT INFORMATION
  Report Type: 
  Country: None (occurrence: None)
  Receive Date: 20071016
  Receipt Date: 20071015
  Transmission Date: 20080405
  Serious: Yes (Other)
  Sender: FDA-Public Use
  Company Number: A0688058A

PATIENT
  Age: 15 Year
  Sex: Female
  Weight: 68 kg

DRUGS (1)
  1. CEFUROXIME [Suspect]
     Indication: PHARYNGITIS
     Dates: start: 20071009, end: 20071009

REACTIONS (4)
  - CHOKING [None]
  - DYSPHAGIA [None]
  - DYSPNOEA [None]
  - THROAT IRRITATION [None]
